FAERS Safety Report 5631800-8 (Version None)
Quarter: 2008Q1

REPORT INFORMATION
  Report Type: 
  Country: None (occurrence: None)
  Receive Date: 20080219
  Receipt Date: 20080219
  Transmission Date: 20080703
  Serious: Yes (Other)
  Sender: FDA-Public Use
  Company Number: None

PATIENT
  Sex: Female

DRUGS (1)
  1. ALTACE [Suspect]
     Indication: HYPERTENSION

REACTIONS (4)
  - HEADACHE [None]
  - PHARYNGOLARYNGEAL PAIN [None]
  - RASH [None]
  - STOMACH DISCOMFORT [None]
